FAERS Safety Report 5932123-X (Version None)
Quarter: 2008Q4

REPORT INFORMATION
  Report Type: 
  Country: None (occurrence: None)
  Receive Date: 20081027
  Receipt Date: 20081027
  Transmission Date: 20090506
  Serious: Yes (Death, Hospitalization)
  Sender: FDA-Public Use
  Company Number: None

PATIENT
  Age: 50 Year
  Sex: Male
  Weight: 87.5442 kg

DRUGS (2)
  1. CETUXIMAB (100MG AT A CONCENTRATION OF 2MG/ML) [Suspect]
     Indication: LUNG NEOPLASM MALIGNANT
     Dosage: 250 MG/M2 IVI-QWK
     Route: 042
     Dates: start: 20080910
  2. TARCEVA [Suspect]
     Indication: LUNG NEOPLASM MALIGNANT
     Dosage: 150 MG PO-QD
     Route: 048
     Dates: start: 20080924

REACTIONS (5)
  - ABDOMINAL DISTENSION [None]
  - ABDOMINAL PAIN [None]
  - DISEASE PROGRESSION [None]
  - NAUSEA [None]
  - VOMITING [None]
